FAERS Safety Report 7197245-7 (Version None)
Quarter: 2010Q4

REPORT INFORMATION
  Report Type: 
  Country: None (occurrence: None)
  Receive Date: 20101224
  Receipt Date: 20101210
  Transmission Date: 20110411
  Serious: Yes (Death)
  Sender: FDA-Public Use
  Company Number: PHHY2010US87638

PATIENT
  Sex: Female

DRUGS (15)
  1. AFINITOR [Suspect]
     Dosage: 10 MG (1 TABLET), QD
     Route: 048
  2. COREG [Concomitant]
     Dosage: 25 MG, UNK
  3. DETROL [Concomitant]
     Dosage: 1 MG, UNK
  4. LASIX [Concomitant]
     Dosage: 20 MG, UNK
  5. NORVASC [Concomitant]
     Dosage: 2.5 MG, UNK
  6. K-DUR [Concomitant]
     Dosage: 10 MEQ, UNK
  7. SIMVASTATIN [Concomitant]
     Dosage: 10 MG, UNK
  8. HYDROCHLOROTHIAZDE TAB [Concomitant]
     Dosage: 12.5 MG, UNK
  9. ALPRAZOLAM [Concomitant]
     Dosage: 1 MG, UNK
  10. LEVOTHROID [Concomitant]
     Dosage: 112 UG, UNK
  11. CLEXANE [Concomitant]
     Dosage: 10 MG, UNK
  12. TRAZODONE [Concomitant]
     Dosage: 150 MG, UNK
  13. ACETAMINOPHEN [Concomitant]
     Dosage: 500 MG, UNK
  14. CARAFATE [Concomitant]
  15. CLONIDINE HCL [Concomitant]
     Dosage: 0.1 MG, UNK

REACTIONS (1)
  - DEATH [None]
